FAERS Safety Report 22246032 (Version 2)
Quarter: 2023Q2

REPORT INFORMATION
  Report Type: Spontaneous
  Country: US (occurrence: US)
  Receive Date: 20230424
  Receipt Date: 20230501
  Transmission Date: 20230721
  Serious: No
  Sender: FDA-Public Use
  Company Number: US-BAYER-2023A055815

PATIENT

DRUGS (1)
  1. ASTEPRO [Suspect]
     Active Substance: AZELASTINE HYDROCHLORIDE
     Dosage: ONE DOSE IN EACH NOSTRIL
     Dates: start: 20230419, end: 20230419

REACTIONS (4)
  - Sneezing [Unknown]
  - Application site pain [Unknown]
  - Rhinorrhoea [Unknown]
  - Ocular hyperaemia [Unknown]
